FAERS Safety Report 7240977-2 (Version None)
Quarter: 2011Q1

REPORT INFORMATION
  Report Type: 
  Country: None (occurrence: None)
  Receive Date: 20110120
  Receipt Date: 20110120
  Transmission Date: 20110831
  Serious: No
  Sender: FDA-Public Use
  Company Number: None

PATIENT
  Age: 54 Year
  Sex: Female

DRUGS (1)
  1. DASATINIB [Suspect]
     Indication: BLAST CRISIS IN MYELOGENOUS LEUKAEMIA
     Dosage: 140 MG - 50MG PO DAILY
     Route: 048
     Dates: start: 20100921, end: 20101003

REACTIONS (1)
  - PANCREATITIS ACUTE [None]
